FAERS Safety Report 15439378 (Version 1)
Quarter: 2018Q3

REPORT INFORMATION
  Report Type: Spontaneous
  Country: US (occurrence: US)
  Receive Date: 20180924
  Receipt Date: 20180924
  Transmission Date: 20181010
  Serious: Yes (Hospitalization)
  Sender: FDA-Public Use
  Company Number: None

PATIENT
  Age: 60 Year
  Sex: Male
  Weight: 113.08 kg

DRUGS (2)
  1. CLONIDINE. [Suspect]
     Active Substance: CLONIDINE
     Indication: ACUTE MYOCARDIAL INFARCTION
  2. CLONIDINE. [Suspect]
     Active Substance: CLONIDINE
     Indication: HYPERTENSION
     Route: 048
     Dates: start: 20060117, end: 20180905

REACTIONS (5)
  - Hypotension [None]
  - Dyspnoea [None]
  - Chest pain [None]
  - Dizziness [None]
  - Bradycardia [None]

NARRATIVE: CASE EVENT DATE: 20180905
